FAERS Safety Report 23949632 (Version 1)
Quarter: 2024Q2

REPORT INFORMATION
  Report Type: Spontaneous
  Country: US (occurrence: US)
  Receive Date: 20240607
  Receipt Date: 20240607
  Transmission Date: 20240715
  Serious: No
  Sender: FDA-Public Use
  Company Number: US-Intersect Ent, Inc.-2157413

PATIENT
  Age: 47 Year
  Sex: Female

DRUGS (1)
  1. SINUVA [Suspect]
     Active Substance: MOMETASONE FUROATE
     Indication: Chronic rhinosinusitis with nasal polyps
     Route: 006
     Dates: start: 20231221

REACTIONS (3)
  - Nasal congestion [Unknown]
  - Allergic fungal rhinosinusitis [Unknown]
  - Rhinorrhoea [Unknown]
